FAERS Safety Report 9547542 (Version 1)
Quarter: 2013Q3

REPORT INFORMATION
  Report Type: Spontaneous
  Country: US (occurrence: US)
  Receive Date: 20130924
  Receipt Date: 20130924
  Transmission Date: 20140515
  Serious: Yes (Other)
  Sender: FDA-Public Use
  Company Number: US-UCBSA-097778

PATIENT
  Sex: Male
  Weight: 145.15 kg

DRUGS (4)
  1. VIMPAT [Suspect]
     Indication: GRAND MAL CONVULSION
     Dosage: DOSE: 300MG ONCE IN AM AND 200 MG ONCE IN PM
     Route: 048
     Dates: start: 2011
  2. VIMPAT [Suspect]
     Indication: PARTIAL SEIZURES
     Dosage: DOSE: 300MG ONCE IN AM AND 200 MG ONCE IN PM
     Route: 048
     Dates: start: 2011
  3. VIMPAT [Suspect]
     Indication: GRAND MAL CONVULSION
     Route: 048
     Dates: start: 201209
  4. VIMPAT [Suspect]
     Indication: PARTIAL SEIZURES
     Route: 048
     Dates: start: 201209

REACTIONS (3)
  - Convulsion [Unknown]
  - Drug ineffective [Unknown]
  - Overdose [Unknown]
